FAERS Safety Report 8577918 (Version 2)
Quarter: 2012Q4

REPORT INFORMATION
  Report Type: 
  Country: US (occurrence: US)
  Receive Date: 20120524
  Receipt Date: 20121005
  Transmission Date: 20130627
  Serious: Yes (Hospitalization, Other)
  Sender: FDA-Public Use
  Company Number: US-BAYER-2012-047498

PATIENT
  Age: 78 Year
  Sex: Male

DRUGS (11)
  1. ASPIRIN [Suspect]
  2. SAXAGLIPTIN [Suspect]
     Indication: TYPE 2 DIABETES MELLITUS
     Dosage: UNK
     Dates: start: 20110506
  3. INSULIN [Suspect]
     Indication: TYPE 2 DIABETES MELLITUS
     Dosage: 50 ui
  4. ALPHA-ADRENOCEPTOR BLOCKING AGENTS [Concomitant]
  5. ACE INHIBITOR NOS [Concomitant]
  6. ANGIOTENSIN II ANTAGONISTS [Concomitant]
  7. BETA BLOCKING AGENTS [Concomitant]
  8. PLATELET AGGREGATION INHIBITORS [Concomitant]
  9. STATIN [Concomitant]
  10. FIBRATES [Concomitant]
  11. CALCIUM CHANNEL BLOCKERS [Concomitant]

REACTIONS (8)
  - Gastrointestinal haemorrhage [Recovered/Resolved]
  - Anaemia [Recovered/Resolved]
  - Asthenia [Recovered/Resolved]
  - Haematuria [Recovered/Resolved]
  - Hypotension [Recovered/Resolved]
  - Syncope [Recovered/Resolved]
  - Large intestine polyp [None]
  - Colon cancer [None]
